FAERS Safety Report 7291513-6 (Version None)
Quarter: 2011Q1

REPORT INFORMATION
  Report Type: 
  Country: None (occurrence: None)
  Receive Date: 20110214
  Receipt Date: 20110202
  Transmission Date: 20110831
  Serious: Yes (Hospitalization)
  Sender: FDA-Public Use
  Company Number: US-JNJCH-2011003151

PATIENT
  Age: 78 Year
  Sex: Female
  Weight: 59.4 kg

DRUGS (6)
  1. BENADRYL [Suspect]
     Indication: PRODUCT USED FOR UNKNOWN INDICATION
     Dosage: TEXT:ONE PER DAY
     Route: 048
  2. ACETYLSALICYLIC ACID [Suspect]
     Indication: CARDIAC DISORDER
     Dosage: TEXT:81MG ONE PER DAY
     Route: 065
  3. TYLENOL (CAPLET) [Suspect]
     Indication: ARTHRITIS
     Dosage: TEXT:650MG ONE PER DAY
     Route: 065
  4. ACETYLSALICYLIC ACID [Concomitant]
     Dosage: TEXT:81MG ONCE DAILY
     Route: 065
  5. ALL OTHER THERAPEUTIC PRODUCTS [Concomitant]
     Indication: ARTHRITIS
     Dosage: TEXT:ONCE A WEEK
     Route: 030
  6. CLARITIN [Concomitant]
     Indication: SEASONAL ALLERGY
     Dosage: TEXT:10MG AS NEEDED
     Route: 065

REACTIONS (2)
  - CARDIAC FAILURE CONGESTIVE [None]
  - PRODUCT QUALITY ISSUE [None]
